FAERS Safety Report 9995770 (Version 1)
Quarter: 2014Q1

REPORT INFORMATION
  Report Type: Spontaneous
  Country: US (occurrence: None)
  Receive Date: 20140304
  Receipt Date: 20140304
  Transmission Date: 20141002
  Serious: Yes (Hospitalization, Other)
  Sender: FDA-Public Use
  Company Number: RB-56861-2013

PATIENT
  Sex: Male
  Weight: 3.08 kg

DRUGS (8)
  1. BUPRENORPHINE [Suspect]
     Indication: DRUG DEPENDENCE
     Route: 064
     Dates: start: 20130222, end: 20130621
  2. PRENATAL VITAMINS [Suspect]
     Indication: PREGNANCY
     Route: 064
  3. ADDERALL [Suspect]
     Indication: ATTENTION DEFICIT/HYPERACTIVITY DISORDER
     Route: 064
  4. NICOTINE [Suspect]
     Indication: TOBACCO USER
     Route: 064
     Dates: start: 20120911, end: 20130621
  5. TRAMADOL [Suspect]
     Indication: PRODUCT USED FOR UNKNOWN INDICATION
     Route: 064
     Dates: start: 20120911, end: 20130331
  6. BENZODIAZEPINE DERIVATIVES [Suspect]
     Indication: PRODUCT USED FOR UNKNOWN INDICATION
     Route: 064
     Dates: start: 20120911, end: 20130331
  7. HEROINE [Suspect]
     Indication: PRODUCT USED FOR UNKNOWN INDICATION
     Route: 064
     Dates: start: 20120911, end: 20130331
  8. OXYCODONE [Suspect]
     Indication: PRODUCT USED FOR UNKNOWN INDICATION
     Route: 064
     Dates: start: 20120911, end: 20130331

REACTIONS (6)
  - Maternal drugs affecting foetus [None]
  - Foetal exposure during pregnancy [None]
  - Breech presentation [None]
  - Caesarean section [None]
  - Exposure during breast feeding [None]
  - Drug withdrawal syndrome neonatal [None]
